FAERS Safety Report 15348847 (Version 1)
Quarter: 2018Q3

REPORT INFORMATION
  Report Type: Spontaneous
  Country: AU (occurrence: AU)
  Receive Date: 20180904
  Receipt Date: 20180904
  Transmission Date: 20181010
  Serious: Yes (Other)
  Sender: FDA-Public Use
  Company Number: AU-MYLANLABS-2018M1064661

PATIENT
  Age: 41 Year
  Sex: Male

DRUGS (2)
  1. PALIPERIDONE. [Suspect]
     Active Substance: PALIPERIDONE
     Indication: SCHIZOAFFECTIVE DISORDER
     Dosage: TITRATED TO 9MG EVERY DAY
     Route: 048
  2. SODIUM VALPROATE [Concomitant]
     Active Substance: VALPROATE SODIUM
     Indication: SCHIZOAFFECTIVE DISORDER
     Dosage: 1500 MG
     Route: 065

REACTIONS (2)
  - Inappropriate antidiuretic hormone secretion [Unknown]
  - Hyponatraemia [Recovering/Resolving]
